FAERS Safety Report 5168905-4 (Version None)
Quarter: 2006Q4

REPORT INFORMATION
  Report Type: 
  Country: None (occurrence: None)
  Receive Date: 20061211
  Receipt Date: 20060116
  Transmission Date: 20070319
  Serious: Yes (Disabling, Other)
  Sender: FDA-Public Use
  Company Number: PHFR2006GB00565

PATIENT
  Age: 67 Year
  Sex: Male
  Weight: 81 kg

DRUGS (4)
  1. ZOMETA [Suspect]
     Indication: METASTASES TO BONE
     Dosage: 4 MG, QMO
     Route: 042
     Dates: start: 20020320, end: 20051017
  2. CYCLOPHOSPHAMIDE [Concomitant]
     Indication: MULTIPLE MYELOMA
     Dosage: 300 MG, QW
     Route: 048
     Dates: start: 20031014, end: 20060301
  3. INTRON A [Concomitant]
     Indication: MULTIPLE MYELOMA
     Dosage: 3 MIU, QW3
     Route: 058
     Dates: start: 20001031
  4. CHEMOTHERAPEUTICS,OTHER [Concomitant]
     Indication: MULTIPLE MYELOMA
     Route: 065
     Dates: start: 20000203, end: 20001031

REACTIONS (1)
  - OSTEONECROSIS [None]
